FAERS Safety Report 5265300-4 (Version None)
Quarter: 2007Q1

REPORT INFORMATION
  Report Type: 
  Country: None (occurrence: None)
  Receive Date: 20070314
  Receipt Date: 20070306
  Transmission Date: 20070707
  Serious: Yes (Disabling, Other)
  Sender: FDA-Public Use
  Company Number: US-JNJFOC-20070104650

PATIENT
  Sex: Male
  Weight: 91.63 kg

DRUGS (1)
  1. TOPAMAX [Suspect]
     Indication: COMPLEX REGIONAL PAIN SYNDROME
     Route: 048

REACTIONS (3)
  - EYE HAEMORRHAGE [None]
  - NEPHROLITHIASIS [None]
  - RETINAL VEIN OCCLUSION [None]
